FAERS Safety Report 8472352-7 (Version None)
Quarter: 2012Q2

REPORT INFORMATION
  Report Type: 
  Country: None (occurrence: None)
  Receive Date: 20120627
  Receipt Date: 20110628
  Transmission Date: 20120825
  Serious: No
  Sender: FDA-Public Use
  Company Number: US-AMGEN-USASP2011033561

PATIENT
  Sex: Male

DRUGS (1)
  1. PROCRIT [Suspect]
     Dosage: 10000 UNIT, QWK
     Dates: start: 20110601

REACTIONS (3)
  - PAIN IN EXTREMITY [None]
  - INCORRECT ROUTE OF DRUG ADMINISTRATION [None]
  - MUSCULOSKELETAL DISORDER [None]
